FAERS Safety Report 6733047-0 (Version None)
Quarter: 2010Q2

REPORT INFORMATION
  Report Type: 
  Country: None (occurrence: None)
  Receive Date: 20100518
  Receipt Date: 20100504
  Transmission Date: 20101027
  Serious: Yes (Hospitalization, Other)
  Sender: FDA-Public Use
  Company Number: 2010SCPR000616

PATIENT
  Age: 6 Year
  Sex: Male

DRUGS (4)
  1. VALPROIC ACID [Suspect]
     Indication: MUSCLE SPASMS
     Dosage: 25 MG/KG, QD,
  2. VITAMIN B6 (PYRIDOXINE HYDROCHLORIDE) UNKNOWN [Concomitant]
  3. PHENYTOIN [Concomitant]
  4. CLOBAZAM (CLOBAZAM) UNKNOWN [Concomitant]

REACTIONS (7)
  - BETA 2 MICROGLOBULIN INCREASED [None]
  - CEREBRAL PALSY [None]
  - EPILEPSY [None]
  - FANCONI SYNDROME [None]
  - METABOLIC ACIDOSIS [None]
  - OEDEMA [None]
  - QUADRIPLEGIA [None]
